FAERS Safety Report 21333707 (Version 1)
Quarter: 2022Q3

REPORT INFORMATION
  Report Type: Spontaneous
  Country: ES (occurrence: ES)
  Receive Date: 20220914
  Receipt Date: 20220914
  Transmission Date: 20221027
  Serious: Yes (Other)
  Sender: FDA-Public Use
  Company Number: None

PATIENT
  Age: 54 Year
  Sex: Female

DRUGS (3)
  1. ZELDOX [Suspect]
     Active Substance: ZIPRASIDONE
     Indication: Schizophrenia
     Dosage: 60 MG, 1X/DAY
     Route: 048
     Dates: start: 20220818
  2. DIAZEPAM [Suspect]
     Active Substance: DIAZEPAM
     Dosage: 10MG FREQ:24 H;
     Route: 048
     Dates: start: 2019
  3. TOPIRAMATE [Suspect]
     Active Substance: TOPIRAMATE
     Dosage: 50MG FREQ 12 H;
     Route: 048
     Dates: start: 2019

REACTIONS (3)
  - Disturbance in attention [Recovering/Resolving]
  - Retrograde amnesia [Recovering/Resolving]
  - Dizziness [Recovering/Resolving]

NARRATIVE: CASE EVENT DATE: 20220819
